FAERS Safety Report 6697374-8 (Version None)
Quarter: 2010Q2

REPORT INFORMATION
  Report Type: 
  Country: None (occurrence: None)
  Receive Date: 20100426
  Receipt Date: 20100415
  Transmission Date: 20101027
  Serious: Yes (Hospitalization)
  Sender: FDA-Public Use
  Company Number: IT-ELI_LILLY_AND_COMPANY-IT201004003846

PATIENT
  Sex: Male

DRUGS (8)
  1. GEMZAR [Suspect]
     Indication: HETEROPLASIA
     Dosage: 1600 MG, UNK
     Dates: start: 20100325
  2. GEMZAR [Suspect]
     Dosage: 1000 MG, UNK
     Dates: start: 20100325
  3. GEMZAR [Suspect]
     Dosage: 200 MG, UNK
     Dates: start: 20100325
  4. TRANSTEC [Concomitant]
     Dosage: 140 MG, EVERY THREE DAYS
  5. GLIBOMET [Concomitant]
     Dosage: UNK, 2/D
  6. DELTACORTENE [Concomitant]
     Dosage: 25 MG, 1/2 TABLET
  7. LEVOPRAID [Concomitant]
     Dosage: 15 D/F, 3/D
  8. LANSOX [Concomitant]
     Dosage: 30 MG, DAILY (1/D)

REACTIONS (5)
  - ACUTE MYOCARDIAL INFARCTION [None]
  - ANAEMIA [None]
  - NEUTROPENIA [None]
  - SYNCOPE [None]
  - THROMBOCYTOPENIA [None]
